FAERS Safety Report 4343218-9 (Version None)
Quarter: 2004Q1

REPORT INFORMATION
  Report Type: 
  Country: None (occurrence: None)
  Receive Date: 20040325
  Receipt Date: 20031223
  Transmission Date: 20041129
  Serious: No
  Sender: FDA-Public Use
  Company Number: USA030844347

PATIENT
  Age: 73 Year
  Sex: Female
  Weight: 47 kg

DRUGS (8)
  1. FORTEO [Suspect]
     Indication: OSTEOPOROSIS
     Dates: start: 20030501
  2. ASPIRIN [Concomitant]
  3. NIZORAL [Concomitant]
  4. GUAIFENESIN [Concomitant]
  5. NASONEX [Concomitant]
  6. NASAL SALINE (SODIUM CHLORIDE) [Concomitant]
  7. FUROSEMIDE [Concomitant]
  8. NIFEDIPINE [Concomitant]

REACTIONS (6)
  - DIZZINESS [None]
  - INJECTION SITE HAEMORRHAGE [None]
  - INJECTION SITE NODULE [None]
  - LIMB INJURY [None]
  - SCAB [None]
  - WEIGHT DECREASED [None]
